FAERS Safety Report 5563863-2 (Version None)
Quarter: 2007Q4

REPORT INFORMATION
  Report Type: 
  Country: None (occurrence: None)
  Receive Date: 20071217
  Receipt Date: 20070925
  Transmission Date: 20080405
  Serious: No
  Sender: FDA-Public Use
  Company Number: US-ASTRAZENECA-2007UW22524

PATIENT
  Age: 55 Year
  Sex: Male
  Weight: 70.3 kg

DRUGS (4)
  1. CRESTOR [Suspect]
     Route: 048
     Dates: start: 20060101
  2. MULTI-VITAMIN [Concomitant]
  3. ENTERIC COATED ACETYLSALICYLIC ACID [Concomitant]
  4. COQ10 [Concomitant]

REACTIONS (1)
  - TENDONITIS [None]
